FAERS Safety Report 5009393-8 (Version None)
Quarter: 2006Q2

REPORT INFORMATION
  Report Type: 
  Country: None (occurrence: None)
  Receive Date: 20060524
  Receipt Date: 20060518
  Transmission Date: 20061013
  Serious: Yes (Death)
  Sender: FDA-Public Use
  Company Number: ES-JNJFOC-20040706670

PATIENT
  Age: 11 Year
  Sex: Female
  Weight: 48 kg

DRUGS (4)
  1. RISPERDAL [Suspect]
     Indication: OBSESSIVE-COMPULSIVE DISORDER
     Route: 048
     Dates: start: 20031015, end: 20031119
  2. TRILEPTAL [Suspect]
     Indication: OBSESSIVE-COMPULSIVE DISORDER
     Route: 048
     Dates: start: 20031015, end: 20031119
  3. AKINETON [Suspect]
     Route: 030
     Dates: start: 20031113, end: 20031113
  4. MODECATE [Suspect]
     Route: 030
     Dates: start: 20031113, end: 20031113

REACTIONS (3)
  - ARRHYTHMIA [None]
  - MYOCARDITIS [None]
  - PYREXIA [None]
